FAERS Safety Report 10017208 (Version 1)
Quarter: 2014Q1

REPORT INFORMATION
  Report Type: Spontaneous
  Country: US (occurrence: US)
  Receive Date: 20140318
  Receipt Date: 20140318
  Transmission Date: 20141002
  Serious: No
  Sender: FDA-Public Use
  Company Number: US-BAYER-2014-036327

PATIENT
  Age: 52 Year
  Sex: Female
  Weight: 68 kg

DRUGS (5)
  1. BETASERON [Suspect]
     Indication: MULTIPLE SCLEROSIS
     Dosage: UNK
     Route: 030
  2. AMPYRA [Suspect]
     Indication: GAIT DISTURBANCE
     Dosage: 10 MG, BID
     Route: 048
     Dates: start: 2014
  3. GABAPENTIN [Concomitant]
     Dosage: 800 MG, UNK
  4. ACTONEL [Concomitant]
     Dosage: 150 MG, UNK
  5. LEVOTHYROXINE [Concomitant]
     Dosage: 88 ?G, UNK

REACTIONS (3)
  - Pre-existing condition improved [None]
  - Insomnia [Not Recovered/Not Resolved]
  - Adverse drug reaction [None]
